FAERS Safety Report 13515390 (Version 1)
Quarter: 2017Q2

REPORT INFORMATION
  Report Type: Spontaneous
  Country: US (occurrence: US)
  Receive Date: 20170504
  Receipt Date: 20170504
  Transmission Date: 20170830
  Serious: No
  Sender: FDA-Public Use
  Company Number: US-BAUSCH-BL-2016-006101

PATIENT
  Age: 65 Year
  Sex: Male
  Weight: 65.83 kg

DRUGS (1)
  1. ZYCLARA [Suspect]
     Active Substance: IMIQUIMOD
     Indication: ACTINIC KERATOSIS
     Route: 061
     Dates: start: 20160302, end: 20160309

REACTIONS (4)
  - Rash erythematous [Recovering/Resolving]
  - Fatigue [Recovering/Resolving]
  - Chills [Recovering/Resolving]
  - Influenza like illness [Recovering/Resolving]

NARRATIVE: CASE EVENT DATE: 20160308
